FAERS Safety Report 17687199 (Version 1)
Quarter: 2020Q2

REPORT INFORMATION
  Report Type: Report from Study
  Country: CA (occurrence: CA)
  Receive Date: 20200421
  Receipt Date: 20200421
  Transmission Date: 20200714
  Serious: Yes (Other)
  Sender: FDA-Public Use
  Company Number: CA-ROCHE-2584643

PATIENT
  Sex: Female

DRUGS (8)
  1. CALCIUM [Concomitant]
     Active Substance: CALCIUM
  2. ORENCIA [Concomitant]
     Active Substance: ABATACEPT
  3. IBUPROFEN. [Concomitant]
     Active Substance: IBUPROFEN
  4. AZATHIOPRINE. [Concomitant]
     Active Substance: AZATHIOPRINE
  5. TYLENOL [Concomitant]
     Active Substance: ACETAMINOPHEN
  6. CLARITIN [Concomitant]
     Active Substance: LORATADINE
  7. RITUXAN [Suspect]
     Active Substance: RITUXIMAB
     Indication: RHEUMATOID ARTHRITIS
     Dosage: DAY 1, 15 ONGOING
     Route: 042
     Dates: start: 20171110
  8. PANTOPRAZOLE [Concomitant]
     Active Substance: PANTOPRAZOLE

REACTIONS (1)
  - Depression [Unknown]
